FAERS Safety Report 8062209-8 (Version None)
Quarter: 2012Q1

REPORT INFORMATION
  Report Type: 
  Country: None (occurrence: None)
  Receive Date: 20120120
  Receipt Date: 20120120
  Transmission Date: 20120608
  Serious: Yes (Hospitalization)
  Sender: FDA-Public Use
  Company Number: None

PATIENT
  Age: 56 Year
  Sex: Female
  Weight: 92.6 kg

DRUGS (7)
  1. RAD001/PLACEBO [Suspect]
     Dosage: 5MG PO DAILY
     Route: 048
  2. FAMOTIDINE [Concomitant]
  3. PACLITAXEL [Suspect]
     Indication: BREAST CANCER
     Dosage: 70MG/M2
     Dates: start: 20111003
  4. DIPHENHYDRAMINE HCL [Concomitant]
  5. CISPLATIN [Suspect]
     Indication: BREAST CANCER
     Dosage: 20MG/M2, IV WEEK
     Route: 042
  6. ONDANSETRON HCL [Concomitant]
  7. DEXAMETHASONE [Concomitant]

REACTIONS (1)
  - PNEUMONIA [None]
